FAERS Safety Report 8117994-3 (Version None)
Quarter: 2012Q1

REPORT INFORMATION
  Report Type: 
  Country: None (occurrence: None)
  Receive Date: 20120207
  Receipt Date: 20120130
  Transmission Date: 20120608
  Serious: No
  Sender: FDA-Public Use
  Company Number: US-B.I. PHARMACEUTICALS,INC./RIDGEFIELD-2012-BP-01834BP

PATIENT
  Sex: Female

DRUGS (7)
  1. SPIRIVA [Suspect]
     Indication: CHRONIC OBSTRUCTIVE PULMONARY DISEASE
     Dosage: 18 MCG
     Route: 055
     Dates: start: 20110101
  2. PERCOCET [Concomitant]
     Indication: BACK PAIN
     Route: 048
     Dates: start: 20110101
  3. ALBUTEROL [Concomitant]
     Indication: CHRONIC OBSTRUCTIVE PULMONARY DISEASE
     Route: 055
     Dates: start: 20060101
  4. OXYGEN [Concomitant]
     Indication: SLEEP APNOEA SYNDROME
     Route: 055
     Dates: start: 20100101
  5. AMLODIPINE [Concomitant]
     Indication: HYPERTENSION
     Dosage: 5 MG
     Route: 048
     Dates: start: 20110101
  6. CELEXA [Concomitant]
     Indication: DEPRESSION
     Dosage: 40 MG
     Route: 048
     Dates: start: 20100101
  7. GABAPENTIN [Concomitant]
     Indication: ARTHRITIS
     Dosage: 300 MG
     Route: 048

REACTIONS (3)
  - DECREASED APPETITE [None]
  - DYSPNOEA [None]
  - WEIGHT DECREASED [None]
